FAERS Safety Report 18017752 (Version 1)
Quarter: 2020Q3

REPORT INFORMATION
  Report Type: Spontaneous
  Country: CA (occurrence: CA)
  Receive Date: 20200713
  Receipt Date: 20200713
  Transmission Date: 20201103
  Serious: Yes (Disabling)
  Sender: FDA-Public Use
  Company Number: CA-ROCHE-2638423

PATIENT
  Sex: Female

DRUGS (8)
  1. PLAQUENIL [Suspect]
     Active Substance: HYDROXYCHLOROQUINE SULFATE
     Indication: PRODUCT USED FOR UNKNOWN INDICATION
     Route: 065
  2. ORENCIA [Concomitant]
     Active Substance: ABATACEPT
  3. IRON [Concomitant]
     Active Substance: IRON
     Route: 065
  4. ENBREL [Concomitant]
     Active Substance: ETANERCEPT
     Route: 065
  5. VOLTAREN [DICLOFENAC DIETHYLAMINE] [Concomitant]
     Active Substance: DICLOFENAC DIETHYLAMINE
     Route: 065
  6. ACTEMRA [Suspect]
     Active Substance: TOCILIZUMAB
     Indication: PRODUCT USED FOR UNKNOWN INDICATION
     Route: 065
  7. METHOTREXATE. [Concomitant]
     Active Substance: METHOTREXATE
     Route: 048
  8. LEUCOVORIN [FOLINIC ACID] [Concomitant]
     Active Substance: LEUCOVORIN
     Route: 065

REACTIONS (6)
  - Drug ineffective [Unknown]
  - Loss of personal independence in daily activities [Unknown]
  - Arthralgia [Unknown]
  - Oral herpes [Unknown]
  - Diarrhoea [Unknown]
  - Liver disorder [Unknown]
